FAERS Safety Report 12736206 (Version 1)
Quarter: 2016Q3

REPORT INFORMATION
  Report Type: Spontaneous
  Country: JP (occurrence: JP)
  Receive Date: 20160912
  Receipt Date: 20160912
  Transmission Date: 20161109
  Serious: Yes (Death)
  Sender: FDA-Public Use
  Company Number: JP-PFIZER INC-2016421034

PATIENT
  Age: 62 Year
  Sex: Male

DRUGS (1)
  1. VORICONAZOLE. [Suspect]
     Active Substance: VORICONAZOLE
     Indication: BRONCHOPULMONARY ASPERGILLOSIS
     Dosage: UNK

REACTIONS (4)
  - Decreased appetite [Unknown]
  - Drug effect incomplete [Fatal]
  - Bronchopulmonary aspergillosis [Fatal]
  - Disease progression [Fatal]
